FAERS Safety Report 8454241-7 (Version None)
Quarter: 2012Q2

REPORT INFORMATION
  Report Type: 
  Country: None (occurrence: None)
  Receive Date: 20120620
  Receipt Date: 20120404
  Transmission Date: 20120825
  Serious: No
  Sender: FDA-Public Use
  Company Number: DK-WATSON-2012-06547

PATIENT
  Sex: Female

DRUGS (4)
  1. ALENDRONATE SODIUM [Suspect]
     Indication: OSTEOPOROSIS
     Dosage: UNK
     Route: 048
     Dates: start: 20070101, end: 20070101
  2. PREDNISOLONE [Concomitant]
     Indication: ASTHMA
     Dosage: 25 MG, DAILY
     Route: 048
     Dates: start: 20030501
  3. CALCIUM [Concomitant]
     Indication: OSTEOPOROSIS
     Route: 048
  4. NATURAL VITAMIN D [Concomitant]
     Indication: OSTEOPOROSIS
     Route: 048

REACTIONS (2)
  - DYSPHAGIA [None]
  - MYALGIA [None]
